FAERS Safety Report 7985935-5 (Version None)
Quarter: 2011Q4

REPORT INFORMATION
  Report Type: 
  Country: None (occurrence: None)
  Receive Date: 20111214
  Receipt Date: 20111201
  Transmission Date: 20120403
  Serious: Yes (Death, Life-Threatening, Hospitalization, Other)
  Sender: FDA-Public Use
  Company Number: 2009AL004654

PATIENT
  Age: 84 Year
  Sex: Male

DRUGS (62)
  1. POTASSIUM [Concomitant]
  2. ZOLADEX [Concomitant]
  3. MAGNESIUM [Concomitant]
  4. VITAMIN TAB [Concomitant]
  5. MIRALAX [Concomitant]
  6. HEMRIL-30 [Concomitant]
  7. CARVEDILOL [Concomitant]
  8. VITAMIN E [Concomitant]
  9. KRISTALOSE [Concomitant]
  10. CARDURA [Concomitant]
  11. HEPARIN [Concomitant]
  12. INDOCIN [Concomitant]
  13. LISINOPRIL [Concomitant]
  14. OCUFLOX [Concomitant]
  15. OXYCODONE HCL [Concomitant]
  16. RISPERIDONE [Concomitant]
  17. CALCIUM [Concomitant]
  18. VITAMIN D [Concomitant]
  19. ALENDRONATE SODIUM [Concomitant]
  20. AMANTADINE HCL [Concomitant]
  21. TAB [Concomitant]
  22. APAP TAB [Concomitant]
  23. VIAGRA [Concomitant]
  24. AMIODARONE [Concomitant]
  25. ARICEPT [Concomitant]
  26. INDOMETHACIN [Concomitant]
  27. CEPHALEXIN [Concomitant]
  28. ZYPREXA [Concomitant]
  29. LEXAPRO [Concomitant]
  30. IRON [Concomitant]
  31. TORADOL [Concomitant]
  32. ALBUTEROL [Concomitant]
  33. COLACE [Concomitant]
  34. KLOR-CON [Concomitant]
  35. ZOCOR [Concomitant]
  36. ALPRAZOLAM [Concomitant]
  37. CASODEX [Concomitant]
  38. GOLYTELY [Concomitant]
  39. TRIMOX [Concomitant]
  40. ASPIRIN [Concomitant]
  41. NAMENDA [Concomitant]
  42. FLOMAX [Concomitant]
  43. ZITHROMAX [Concomitant]
  44. ZYRTEC [Concomitant]
  45. ZESTRIL [Concomitant]
  46. LIPITOR [Concomitant]
  47. ZOMETA [Concomitant]
  48. BILBERRY SUPPLEMENT [Concomitant]
  49. ZYPREXA [Concomitant]
  50. FLUZONE [Concomitant]
  51. ALLOPURINOL [Concomitant]
  52. ATROVENT [Concomitant]
  53. LIDOCAINE [Concomitant]
  54. NIASPAN [Concomitant]
  55. VITAMIN B-12 [Concomitant]
  56. DIGOXIN [Suspect]
     Indication: TACHYCARDIA
     Dosage: 0.25 MG;QD;PO
     Route: 048
     Dates: start: 19690101, end: 20100302
  57. METOPROLOL TARTRATE [Concomitant]
  58. LASIX [Concomitant]
  59. LUPRON [Concomitant]
  60. FOSAMAX [Concomitant]
  61. SPIRONOLACTONE [Concomitant]
  62. FLUZONE [Concomitant]

REACTIONS (77)
  - PROSTATIC SPECIFIC ANTIGEN INCREASED [None]
  - LOWER URINARY TRACT SYMPTOMS [None]
  - HEPATIC CYST [None]
  - MEMORY IMPAIRMENT [None]
  - CARDIOMEGALY [None]
  - CARDIAC ARREST [None]
  - CONFUSIONAL STATE [None]
  - WEIGHT DECREASED [None]
  - MITRAL VALVE CALCIFICATION [None]
  - TRICUSPID VALVE INCOMPETENCE [None]
  - FATIGUE [None]
  - OEDEMA [None]
  - PRODUCT SUBSTITUTION ISSUE [None]
  - RENAL FAILURE ACUTE [None]
  - UNEVALUABLE EVENT [None]
  - ANHEDONIA [None]
  - PROSTATE CANCER METASTATIC [None]
  - DYSPNOEA [None]
  - VENTRICULAR HYPOKINESIA [None]
  - CARDIAC FAILURE CONGESTIVE [None]
  - PRODUCT QUALITY ISSUE [None]
  - HYPERLIPIDAEMIA [None]
  - TREATMENT NONCOMPLIANCE [None]
  - PAIN [None]
  - PULMONARY HYPERTENSION [None]
  - CARDIAC ANEURYSM [None]
  - DYSLIPIDAEMIA [None]
  - DEMENTIA [None]
  - RENAL FAILURE [None]
  - DYSURIA [None]
  - AORTIC STENOSIS [None]
  - PERICARDIAL EFFUSION [None]
  - ABDOMINAL DISCOMFORT [None]
  - JOINT SWELLING [None]
  - CARDIAC FAILURE [None]
  - ANAEMIA [None]
  - MITRAL VALVE INCOMPETENCE [None]
  - OEDEMA PERIPHERAL [None]
  - OSTEOPOROSIS [None]
  - RENAL FAILURE CHRONIC [None]
  - HYPERTENSION [None]
  - CARDIOMYOPATHY [None]
  - CARDIAC PACEMAKER INSERTION [None]
  - DIZZINESS POSTURAL [None]
  - CARDIAC FLUTTER [None]
  - BUNDLE BRANCH BLOCK LEFT [None]
  - CHEST PAIN [None]
  - CONTUSION [None]
  - OSTEOPENIA [None]
  - BONE PAIN [None]
  - PULSE ABSENT [None]
  - MYOCARDIAL ISCHAEMIA [None]
  - IRON DEFICIENCY ANAEMIA [None]
  - DRUG INTOLERANCE [None]
  - DEPRESSION [None]
  - NAUSEA [None]
  - MULTIPLE INJURIES [None]
  - LIVER FUNCTION TEST ABNORMAL [None]
  - AORTIC VALVE INCOMPETENCE [None]
  - ORTHOPNOEA [None]
  - BLOOD PRESSURE DECREASED [None]
  - HYPOTHYROIDISM [None]
  - POLLAKIURIA [None]
  - RALES [None]
  - AGITATION [None]
  - ASTHENIA [None]
  - ATRIOVENTRICULAR BLOCK FIRST DEGREE [None]
  - BLOOD ALKALINE PHOSPHATASE INCREASED [None]
  - OSTEOARTHRITIS [None]
  - OBSTRUCTIVE AIRWAYS DISORDER [None]
  - VISUAL ACUITY REDUCED [None]
  - DYSKINESIA [None]
  - DECREASED APPETITE [None]
  - TOXICITY TO VARIOUS AGENTS [None]
  - COUGH [None]
  - WHEEZING [None]
  - HYPOTENSION [None]
